FAERS Safety Report 19421513 (Version 1)
Quarter: 2021Q2

REPORT INFORMATION
  Report Type: Spontaneous
  Country: US (occurrence: US)
  Receive Date: 20210615
  Receipt Date: 20210615
  Transmission Date: 20210717
  Serious: No
  Sender: FDA-Public Use
  Company Number: None

PATIENT
  Age: 55 Year
  Sex: Female
  Weight: 67.5 kg

DRUGS (9)
  1. EMGALITY [Suspect]
     Active Substance: GALCANEZUMAB-GNLM
     Indication: MIGRAINE
     Dosage: ?          QUANTITY:2 INJECTION(S);?
     Route: 058
     Dates: start: 20210315
  2. TYLENOL [Concomitant]
     Active Substance: ACETAMINOPHEN
  3. ATORVASTATIN [Concomitant]
     Active Substance: ATORVASTATIN
  4. IMITREX [Concomitant]
     Active Substance: SUMATRIPTAN SUCCINATE
  5. PRILOSEC [Concomitant]
     Active Substance: OMEPRAZOLE MAGNESIUM
  6. EXCEDRIN [Concomitant]
     Active Substance: ACETAMINOPHEN\ASPIRIN\CAFFEINE
  7. PEPCID AC [Concomitant]
     Active Substance: FAMOTIDINE
  8. UBRELVY [Concomitant]
     Active Substance: UBROGEPANT
  9. ZYRTEK [Concomitant]
     Active Substance: CETIRIZINE HYDROCHLORIDE

REACTIONS (2)
  - Arthralgia [None]
  - Gastrooesophageal reflux disease [None]

NARRATIVE: CASE EVENT DATE: 20210316
